FAERS Safety Report 23303844 (Version 1)
Quarter: 2023Q4

REPORT INFORMATION
  Report Type: Spontaneous
  Country: DE (occurrence: DE)
  Receive Date: 20231215
  Receipt Date: 20231215
  Transmission Date: 20240110
  Serious: Yes (Hospitalization, Other)
  Sender: FDA-Public Use
  Company Number: DE-AMK-270432

PATIENT
  Age: 80 Year
  Sex: Female
  Weight: 77 kg

DRUGS (12)
  1. FRAGMIN [Suspect]
     Active Substance: DALTEPARIN SODIUM
     Indication: Thrombosis prophylaxis
     Dosage: 25.000 IE/ML
     Route: 058
     Dates: start: 20231019, end: 20231023
  2. FRAGMIN [Suspect]
     Active Substance: DALTEPARIN SODIUM
     Dosage: 5000 IU
  3. LETROZOLE [Concomitant]
     Active Substance: LETROZOLE
  4. PANTOPRAZOLE [Concomitant]
     Active Substance: PANTOPRAZOLE
     Dates: start: 20231020
  5. NALOXONE HYDROCHLORIDE\OXYCODONE HYDROCHLORIDE [Concomitant]
     Active Substance: NALOXONE HYDROCHLORIDE\OXYCODONE HYDROCHLORIDE
     Dates: start: 20231020
  6. METAMIZOLE [Concomitant]
     Active Substance: METAMIZOLE
     Dates: start: 20231020
  7. POLYETHYLENE GLYCOLS [Concomitant]
     Active Substance: POLYETHYLENE GLYCOLS
     Dates: start: 20231020
  8. LEVOTHYROXINE SODIUM [Concomitant]
     Active Substance: LEVOTHYROXINE SODIUM
  9. DIMENHYDRINATE [Concomitant]
     Active Substance: DIMENHYDRINATE
     Dates: start: 20231020
  10. CANDESARTAN [Concomitant]
     Active Substance: CANDESARTAN
  11. ACETAMINOPHEN [Concomitant]
     Active Substance: ACETAMINOPHEN
     Dates: start: 20231020
  12. TORSEMIDE [Concomitant]
     Active Substance: TORSEMIDE
     Dosage: LONG TERM MEDICTION

REACTIONS (3)
  - Pulmonary embolism [Not Recovered/Not Resolved]
  - Deep vein thrombosis [Not Recovered/Not Resolved]
  - Drug ineffective [Unknown]

NARRATIVE: CASE EVENT DATE: 20231023
